FAERS Safety Report 16625603 (Version 1)
Quarter: 2019Q3

REPORT INFORMATION
  Report Type: Spontaneous
  Country: US (occurrence: US)
  Receive Date: 20190724
  Receipt Date: 20190724
  Transmission Date: 20191004
  Serious: No
  Sender: FDA-Public Use
  Company Number: US-TEVA-2019-US-1080906

PATIENT
  Sex: Female

DRUGS (1)
  1. SUCRALFATE TABLETS, USP [Suspect]
     Active Substance: SUCRALFATE
     Dosage: DOSE STRENGTH:  1
     Route: 048

REACTIONS (2)
  - Product use complaint [Unknown]
  - Product size issue [Unknown]
